FAERS Safety Report 6180520-2 (Version None)
Quarter: 2009Q2

REPORT INFORMATION
  Report Type: 
  Country: None (occurrence: None)
  Receive Date: 20090504
  Receipt Date: 20090504
  Transmission Date: 20091009
  Serious: No
  Sender: FDA-Public Use
  Company Number: None

PATIENT
  Age: 55 Year
  Sex: Female
  Weight: 55.3388 kg

DRUGS (1)
  1. ACTONEL [Suspect]
     Indication: OSTEOPOROSIS PROPHYLAXIS
     Dosage: 150 MG ONCE A MONTH PO
     Route: 048
     Dates: start: 20090501, end: 20090501

REACTIONS (8)
  - ABDOMINAL DISTENSION [None]
  - BONE PAIN [None]
  - CRYING [None]
  - DIARRHOEA [None]
  - HEADACHE [None]
  - INFLUENZA [None]
  - MYALGIA [None]
  - PAIN [None]
